FAERS Safety Report 7572155-1 (Version None)
Quarter: 2011Q2

REPORT INFORMATION
  Report Type: 
  Country: None (occurrence: None)
  Receive Date: 20110624
  Receipt Date: 20110616
  Transmission Date: 20111010
  Serious: Yes (Hospitalization, Other)
  Sender: FDA-Public Use
  Company Number: ES-AMGEN GMBH-KDC444019

PATIENT
  Age: 80 Year
  Sex: Male

DRUGS (8)
  1. ROMIPLOSTIM [Suspect]
     Indication: MYELODYSPLASTIC SYNDROME
     Dosage: UNK UNK, QWK
     Route: 058
     Dates: start: 20100217, end: 20110216
  2. OMNIC [Concomitant]
     Dosage: 0.4 MG, QD
     Route: 048
     Dates: start: 20070503
  3. ARANESP [Concomitant]
     Dosage: 30 MG, QWK
     Route: 058
     Dates: start: 20100915, end: 20101020
  4. OMEPRAZOLE [Concomitant]
     Dosage: 20 MG, QD
     Route: 048
     Dates: start: 20100717
  5. ALLOPURINOL [Concomitant]
     Dosage: 100 MG, QD
     Route: 048
     Dates: start: 20100717
  6. ENANTYUM [Concomitant]
     Dosage: UNK UNK, PRN
     Route: 048
     Dates: start: 20100717
  7. ENALAPRIL MALEATE [Concomitant]
     Dosage: 20 MG, QD
     Route: 048
     Dates: start: 19900101
  8. ACETAMINOPHEN [Concomitant]
     Dosage: UNK UNK, PRN
     Route: 048
     Dates: start: 20100723

REACTIONS (1)
  - COLON CANCER [None]
